FAERS Safety Report 13701420 (Version 1)
Quarter: 2017Q2

REPORT INFORMATION
  Report Type: Spontaneous
  Country: US (occurrence: US)
  Receive Date: 20170628
  Receipt Date: 20170628
  Transmission Date: 20170830
  Serious: Yes (Life-Threatening, Hospitalization, Disabling)
  Sender: FDA-Public Use
  Company Number: None

PATIENT
  Age: 31 Year
  Sex: Female
  Weight: 69.75 kg

DRUGS (4)
  1. CARAFATE [Concomitant]
     Active Substance: SUCRALFATE
  2. CALCIUM [Concomitant]
     Active Substance: CALCIUM
  3. NEXIUM [Concomitant]
     Active Substance: ESOMEPRAZOLE MAGNESIUM
  4. ZANTAC [Suspect]
     Active Substance: RANITIDINE HYDROCHLORIDE
     Indication: GASTRIC DISORDER
     Route: 048
     Dates: start: 20170128, end: 20170211

REACTIONS (1)
  - Immune thrombocytopenic purpura [None]

NARRATIVE: CASE EVENT DATE: 20170131
